FAERS Safety Report 8968060 (Version 2)
Quarter: 2013Q1

REPORT INFORMATION
  Report Type: Spontaneous
  Country: US (occurrence: US)
  Receive Date: 20121218
  Receipt Date: 20130108
  Transmission Date: 20140127
  Serious: Yes (Hospitalization)
  Sender: FDA-Public Use
  Company Number: US-AMGEN-USASP2012080709

PATIENT
  Age: 49 Year
  Sex: Female
  Weight: 61.67 kg

DRUGS (3)
  1. FILGRASTIM [Suspect]
     Indication: BREAST CANCER
     Dosage: 480 MUG, 7DAYS DAY 2 CYCLE 3 TO DAY 8 CYCLE 3
     Route: 065
  2. DOXORUBICIN [Suspect]
     Indication: BREAST CANCER
     Dosage: UNK
     Route: 065
  3. CYCLOPHOSPHAMIDE [Suspect]
     Indication: BREAST CANCER
     Dosage: UNK
     Route: 065

REACTIONS (1)
  - Subcutaneous abscess [Not Recovered/Not Resolved]
